FAERS Safety Report 25779709 (Version 1)
Quarter: 2025Q3

REPORT INFORMATION
  Report Type: Spontaneous
  Country: US (occurrence: US)
  Receive Date: 20250909
  Receipt Date: 20250909
  Transmission Date: 20251020
  Serious: No
  Sender: INSUD PHARMA
  Company Number: US-INSUD PHARMA-2508US07174

PATIENT

DRUGS (1)
  1. TESTOSTERONE [Suspect]
     Active Substance: TESTOSTERONE
     Indication: Androgen deficiency
     Route: 061
     Dates: start: 20250408

REACTIONS (1)
  - Blood testosterone decreased [Not Recovered/Not Resolved]
